FAERS Safety Report 8267144-8 (Version None)
Quarter: 2012Q2

REPORT INFORMATION
  Report Type: 
  Country: None (occurrence: None)
  Receive Date: 20120409
  Receipt Date: 20120330
  Transmission Date: 20120825
  Serious: Yes (Other)
  Sender: FDA-Public Use
  Company Number: US-BAYER-2011-023755

PATIENT
  Age: 25 Year
  Sex: Female
  Weight: 52.154 kg

DRUGS (20)
  1. AZITHROMYCIN [Concomitant]
     Dosage: 250 MG, UNK
     Route: 048
  2. IMITREX [Concomitant]
     Indication: MIGRAINE
     Dosage: 50 MG, PRN
  3. PROAIR HFA [Concomitant]
     Indication: COUGH
     Dosage: 2 PUFF(S), QID INHALER
     Route: 055
  4. PEPCID [Concomitant]
     Indication: GASTRIC DISORDER
  5. ZOFRAN [Concomitant]
  6. PROTONIX [Concomitant]
     Dosage: 40 MG, UNK
  7. CARAFATE [Concomitant]
     Indication: GASTRIC DISORDER
     Dosage: 1 G QID BEFORE MEALS
     Route: 048
  8. VICODIN [Concomitant]
  9. LEVAQUIN [Concomitant]
  10. NASACORT AQ [Concomitant]
     Dosage: 55MCG TWO SPRAYS ONCE A DAY
     Route: 055
  11. METHYLPREDNISOLONE [Concomitant]
     Dosage: 4 MG, UNK
     Route: 048
  12. EXCEDRIN EXTRA STRENGTH TABLETS [Concomitant]
     Dosage: DAILY
  13. HYDROCODONE BITARTRATE [Concomitant]
     Indication: PAIN IN EXTREMITY
     Dosage: 7.5/500 ONE TAB EVERY EIGHT HOURS
  14. I.V. SOLUTIONS [Concomitant]
     Route: 042
  15. YAZ [Suspect]
     Indication: ORAL CONTRACEPTION
     Dosage: UNK
     Dates: start: 20070215, end: 20090114
  16. VALTREX [Concomitant]
     Dosage: 500 MG, UNK
     Route: 048
  17. YASMIN [Suspect]
     Indication: ORAL CONTRACEPTION
     Dosage: UNK
     Dates: start: 20090114, end: 20090306
  18. MORPHINE [Concomitant]
     Route: 042
  19. CLONAZEPAM [Concomitant]
     Dosage: 1 MG, TID
  20. NAPROXEN (ALEVE) [Concomitant]

REACTIONS (3)
  - CHOLECYSTECTOMY [None]
  - INJURY [None]
  - CHOLECYSTITIS [None]
